FAERS Safety Report 8959087 (Version 1)
Quarter: 2012Q4

REPORT INFORMATION
  Report Type: 
  Country: US (occurrence: US)
  Receive Date: 20121212
  Receipt Date: 20121212
  Transmission Date: 20130627
  Serious: No
  Sender: FDA-Public Use
  Company Number: US-B.I. PHARMACEUTICALS,INC./RIDGEFIELD-2012-BI-02312BP

PATIENT
  Sex: Male
  Weight: 72 kg

DRUGS (5)
  1. PRADAXA [Suspect]
     Indication: ATRIAL FIBRILLATION
     Dosage: 300 mg
     Route: 048
     Dates: start: 20121105
  2. METOPROLOL [Concomitant]
     Route: 048
  3. FLECAINIDE [Concomitant]
     Route: 048
  4. STEROID [Concomitant]
     Route: 048
  5. PRILOSEC [Concomitant]
     Route: 048

REACTIONS (1)
  - Abnormal loss of weight [Not Recovered/Not Resolved]
